FAERS Safety Report 9235640 (Version 1)
Quarter: 2013Q1

REPORT INFORMATION
  Report Type: Spontaneous
  Country: US (occurrence: None)
  Receive Date: 20121031
  Receipt Date: 20121031
  Transmission Date: 20140127
  Serious: No
  Sender: FDA-Public Use
  Company Number: PHEH2012US016974

PATIENT
  Sex: Female
  Weight: 72.6 kg

DRUGS (19)
  1. GILENYA (FTY) CAPSULE, 0.5MG [Suspect]
     Route: 048
  2. FOSAMAX (ALENDRONATE SODIUM) TABLET [Concomitant]
  3. PRISTIQ (DESVENLAFAXINE SUCCINATE) TABLET [Concomitant]
  4. AMBIEN (ZOLPIDEM TARTRATE) TABLET [Concomitant]
  5. COUMADIN (WARFARIN SODIUM) TABLET [Concomitant]
  6. LYRICA (PREGABALIN) CAPSULE [Concomitant]
  7. RITALIN (METHYLPHENIDATE HYDROCHLORIDE) TABLET [Concomitant]
  8. CLONAZEPAM (CLONAZEPAM) TABLET [Concomitant]
  9. BACLOFEN (BACLOFEN) TABLET [Concomitant]
  10. FENTANYL (FENTANYL) [Concomitant]
  11. MIRAPEX (PRAMIPEXOLE DIHYDROCHLORIDE) [Concomitant]
  12. FAMPRIDINE (FAMPRIDINE) TABLET [Concomitant]
  13. LIDODERM (LIDOCAINE) [Concomitant]
  14. VITAMIN D (ERGOCALCIFEROL) CAPSULE [Concomitant]
  15. ABILIFY (ARIPIPRAZOLE) TABLET [Concomitant]
  16. VESICARE (SOLIFENACIN) TABLET [Concomitant]
  17. MULTIVITAMIN (VITAMINS NOS) CAPSULE [Concomitant]
  18. NUVIGIL (ARMODAFINIL) TABLET [Concomitant]
  19. PERCOCET (OXYCODONE HYDROCHLORIDE, PARACETAMOL) TABLET [Concomitant]

REACTIONS (2)
  - Memory impairment [None]
  - Muscle spasms [None]
